FAERS Safety Report 24206218 (Version 1)
Quarter: 2024Q3

REPORT INFORMATION
  Report Type: Spontaneous
  Country: CL (occurrence: CL)
  Receive Date: 20240813
  Receipt Date: 20240813
  Transmission Date: 20241017
  Serious: Yes (Disabling)
  Sender: BOEHRINGER INGELHEIM
  Company Number: CL-BoehringerIngelheim-2024-BI-045066

PATIENT
  Age: 92 Year
  Sex: Female

DRUGS (2)
  1. PRAXBIND [Suspect]
     Active Substance: IDARUCIZUMAB
     Indication: Procoagulant therapy
     Dates: start: 20240718, end: 20240718
  2. ALTEPLASE [Suspect]
     Active Substance: ALTEPLASE
     Indication: Ischaemic stroke

REACTIONS (1)
  - Procedural haemorrhage [Recovered/Resolved with Sequelae]
